FAERS Safety Report 5362737-X (Version None)
Quarter: 2007Q2

REPORT INFORMATION
  Report Type: 
  Country: None (occurrence: None)
  Receive Date: 20070612
  Receipt Date: 20070606
  Transmission Date: 20071010
  Serious: Yes (Death, Hospitalization)
  Sender: FDA-Public Use
  Company Number: TAP2007Q00754

PATIENT
  Age: 84 Year
  Sex: Male

DRUGS (8)
  1. LUPRON DEPOT-4 [Suspect]
     Indication: PROSTATE CANCER
     Dosage: 30 MG, 1 IN 4 M
     Dates: start: 20050818, end: 20070329
  2. PROLOPA (AMDOPAR /00349201/) [Concomitant]
  3. NOVO-SELEGILINE (SELEGILINE HYDROCHLORIDE) [Concomitant]
  4. RHOXAL-NITRAZEPAM (NITRAZEPAM) [Concomitant]
  5. SALBUTAMOL (SALBUTAMOL) [Concomitant]
  6. SPIRIVA [Concomitant]
  7. SEREVENT [Concomitant]
  8. FLOVENT [Concomitant]

REACTIONS (1)
  - PNEUMONIA [None]
